FAERS Safety Report 21511325 (Version 1)
Quarter: 2022Q4

REPORT INFORMATION
  Report Type: Spontaneous
  Country: CN (occurrence: CN)
  Receive Date: 20221027
  Receipt Date: 20221027
  Transmission Date: 20230113
  Serious: Yes (Hospitalization, Other)
  Sender: FDA-Public Use
  Company Number: None

PATIENT
  Age: 4 Year
  Sex: Female
  Weight: 15 kg

DRUGS (6)
  1. CYCLOPHOSPHAMIDE [Suspect]
     Active Substance: CYCLOPHOSPHAMIDE
     Indication: Nephroblastoma
     Dosage: 0.580 G QD DILUTED WITH 250 ML OF SODIUM CHLORIDE INJECTION
     Route: 041
     Dates: start: 20221003, end: 20221004
  2. SODIUM CHLORIDE [Suspect]
     Active Substance: SODIUM CHLORIDE
     Indication: Medication dilution
     Dosage: 250 ML QD, USED TO DILUTE 0.58 G OF CYCLOPHOSPHAMIDE POWDER FOR INJECTION
     Route: 041
     Dates: start: 20221003, end: 20221004
  3. SODIUM CHLORIDE [Suspect]
     Active Substance: SODIUM CHLORIDE
     Dosage: 250 ML QD, USED TO DILUTE 20 MG OF DOXORUBICIN HYDROCHLORIDE POWDER FOR INJECTION
     Route: 041
     Dates: start: 20221003, end: 20221004
  4. SODIUM CHLORIDE [Suspect]
     Active Substance: SODIUM CHLORIDE
     Dosage: 20 ML, QD USED TO DILUTE 0.72 MG OF VINCRISTINE SULFATE POWDER FOR INJECTION
     Route: 042
     Dates: start: 20221003, end: 20221004
  5. DOXORUBICIN HYDROCHLORIDE [Suspect]
     Active Substance: DOXORUBICIN HYDROCHLORIDE
     Indication: Nephroblastoma
     Dosage: 20 MG QD DILUTED WITH 250 ML OF SODIUM CHLORIDE INJECTION
     Route: 041
     Dates: start: 20221003, end: 20221004
  6. VINCRISTINE SULFATE [Suspect]
     Active Substance: VINCRISTINE SULFATE
     Indication: Nephroblastoma
     Dosage: 0.72 MG QD DILUTED IN 20 ML OF SODIUM CHLORIDE INJECTION
     Route: 042
     Dates: start: 20221003, end: 20221004

REACTIONS (1)
  - Myelosuppression [Recovering/Resolving]

NARRATIVE: CASE EVENT DATE: 20221011
